FAERS Safety Report 8615783-4 (Version None)
Quarter: 2012Q3

REPORT INFORMATION
  Report Type: 
  Country: None (occurrence: None)
  Receive Date: 20120823
  Receipt Date: 20120820
  Transmission Date: 20120928
  Serious: Yes (Other)
  Sender: FDA-Public Use
  Company Number: GB-PFIZER INC-2012203317

PATIENT
  Age: 63 Year
  Sex: Male

DRUGS (3)
  1. LOSARTAN POTASSIUM [Suspect]
     Indication: BLOOD PRESSURE ABNORMAL
     Dosage: 100 MG, UNK
     Route: 048
  2. LOSARTAN POTASSIUM [Suspect]
     Dosage: 100 MG, UNK
     Dates: end: 20120806
  3. AMLODIPINE BESYLATE [Suspect]
     Indication: BLOOD PRESSURE
     Dosage: UNK

REACTIONS (5)
  - CHEST PAIN [None]
  - DYSPNOEA [None]
  - CHEST DISCOMFORT [None]
  - TRACHEAL DISORDER [None]
  - COUGH [None]
